FAERS Safety Report 16380141 (Version 1)
Quarter: 2019Q2

REPORT INFORMATION
  Report Type: Report from Study
  Country: None (occurrence: US)
  Receive Date: 20190601
  Receipt Date: 20190601
  Transmission Date: 20190711
  Serious: Yes (Other)
  Sender: FDA-Public Use
  Company Number: US-ABBVIE-19K-163-2801559-00

PATIENT
  Sex: Male

DRUGS (1)
  1. HUMIRA [Suspect]
     Active Substance: ADALIMUMAB
     Indication: RHEUMATOID ARTHRITIS
     Route: 058
     Dates: start: 20180527

REACTIONS (6)
  - Joint range of motion decreased [Unknown]
  - Peripheral swelling [Unknown]
  - Loss of personal independence in daily activities [Unknown]
  - Arthralgia [Unknown]
  - Accident [Unknown]
  - Limb traumatic amputation [Recovering/Resolving]

NARRATIVE: CASE EVENT DATE: 2019
